FAERS Safety Report 9708103 (Version 1)
Quarter: 2013Q4

REPORT INFORMATION
  Report Type: Spontaneous
  Country: CN (occurrence: None)
  Receive Date: 20131121
  Receipt Date: 20131121
  Transmission Date: 20140711
  Serious: Yes (Other)
  Sender: FDA-Public Use
  Company Number: 2013P1020209

PATIENT
  Age: 25 Year
  Sex: Male
  Weight: 79.83 kg

DRUGS (1)
  1. ZINACEF [Suspect]
     Indication: UPPER RESPIRATORY TRACT INFECTION
     Route: 042
     Dates: start: 20120731, end: 20120801

REACTIONS (2)
  - Anaphylactoid reaction [None]
  - Amaurosis [None]
